FAERS Safety Report 21513079 (Version 1)
Quarter: 2022Q4

REPORT INFORMATION
  Report Type: Spontaneous
  Country: US (occurrence: US)
  Receive Date: 20221027
  Receipt Date: 20221027
  Transmission Date: 20230113
  Serious: No
  Sender: FDA-Public Use
  Company Number: US-GSKCCFUS-Case-01536776_AE-87077

PATIENT
  Sex: Female

DRUGS (1)
  1. TRELEGY ELLIPTA [Suspect]
     Active Substance: FLUTICASONE FUROATE\UMECLIDINIUM BROMIDE\VILANTEROL TRIFENATATE
     Indication: Dyspnoea
     Dosage: 100/62.5/25MCG
     Route: 055
     Dates: start: 202210

REACTIONS (3)
  - Sleep apnoea syndrome [Unknown]
  - Drug ineffective [Not Recovered/Not Resolved]
  - Extra dose administered [Unknown]
